FAERS Safety Report 19722784 (Version 2)
Quarter: 2021Q3

REPORT INFORMATION
  Report Type: Spontaneous
  Country: US (occurrence: US)
  Receive Date: 20210819
  Receipt Date: 20210906
  Transmission Date: 20211014
  Serious: Yes (Life-Threatening, Other)
  Sender: FDA-Public Use
  Company Number: US-PFIZER INC-202101048196

PATIENT
  Age: 81 Year
  Sex: Male

DRUGS (7)
  1. VANCOMYCIN HCL [Suspect]
     Active Substance: VANCOMYCIN HYDROCHLORIDE
     Indication: ANTIBIOTIC THERAPY
     Dosage: 1500 MG, 2X/DAY (EVERY 12 HOURS)
     Route: 042
  2. RIFAMPIN. [Concomitant]
     Active Substance: RIFAMPIN
     Indication: ANTIBIOTIC THERAPY
     Dosage: 300 MG, 2X/DAY (EVERY 12 HOURS)
     Route: 042
  3. VANCOMYCIN HCL [Suspect]
     Active Substance: VANCOMYCIN HYDROCHLORIDE
     Dosage: 1250 MG, 2X/DAY (EVERY 12  HOURS TO COMPLETE A SIX?WEEK COURSE)
     Route: 042
  4. PREDNISONE. [Concomitant]
     Active Substance: PREDNISONE
     Dosage: 1 MG/KG
  5. CEFEPIME [Concomitant]
     Active Substance: CEFEPIME HYDROCHLORIDE
     Indication: ANTIBIOTIC THERAPY
     Dosage: 2000 MG, 3X/DAY (EVERY EIGHT HOURS)
     Route: 042
  6. DAPTOMYCIN. [Concomitant]
     Active Substance: DAPTOMYCIN
     Indication: ANTIBIOTIC THERAPY
     Dosage: 8 MG, 1X/DAY (EVERY 24 HOURS)
     Route: 042
  7. IMMUNOGLOBULIN HUMAN NORMAL [Concomitant]
     Active Substance: HUMAN IMMUNOGLOBULIN G
     Dosage: UNK 0.4 (G/KG OVER THE NEXT FOUR DAYS)

REACTIONS (1)
  - Immune thrombocytopenia [Recovered/Resolved]
